FAERS Safety Report 5925950-6 (Version None)
Quarter: 2008Q4

REPORT INFORMATION
  Report Type: 
  Country: None (occurrence: None)
  Receive Date: 20081021
  Receipt Date: 20081013
  Transmission Date: 20090506
  Serious: Yes (Death, Life-Threatening, Hospitalization)
  Sender: FDA-Public Use
  Company Number: ZA-ABBOTT-08P-143-0478584-00

PATIENT
  Sex: Male
  Weight: 54.4 kg

DRUGS (8)
  1. RITONAVIR SOFT GELATIN CAPSULES [Suspect]
     Indication: HIV INFECTION
     Route: 048
     Dates: start: 20080709
  2. TMC114 [Concomitant]
     Indication: HIV INFECTION
     Route: 048
     Dates: start: 20080709
  3. CAPTOPRIL [Concomitant]
     Indication: CARDIAC FAILURE CONGESTIVE
     Route: 048
     Dates: start: 20071010, end: 20080927
  4. DIGOXIN [Concomitant]
     Indication: CARDIAC FAILURE CONGESTIVE
     Route: 048
     Dates: start: 20071010, end: 20080927
  5. SPIRONOLACTONE [Concomitant]
     Indication: CARDIAC FAILURE CONGESTIVE
     Route: 048
     Dates: start: 20071010, end: 20080927
  6. FUROSEMIDE [Concomitant]
     Indication: CARDIAC FAILURE CONGESTIVE
     Route: 048
     Dates: start: 20071010, end: 20080927
  7. FUROSEMIDE [Concomitant]
     Indication: RENAL FAILURE
     Route: 042
     Dates: start: 20080927, end: 20080927
  8. TENOPRESS/ATENOLOL [Concomitant]
     Indication: CARDIAC FAILURE CONGESTIVE
     Route: 048
     Dates: start: 20071010, end: 20080927

REACTIONS (4)
  - ANAEMIA [None]
  - COMA URAEMIC [None]
  - RENAL FAILURE ACUTE [None]
  - THROMBOCYTOPENIA [None]
